FAERS Safety Report 22091601 (Version 6)
Quarter: 2025Q4

REPORT INFORMATION
  Report Type: Spontaneous
  Country: CA (occurrence: CA)
  Receive Date: 20230314
  Receipt Date: 20251121
  Transmission Date: 20260117
  Serious: Yes (Other)
  Sender: APOTEX
  Company Number: CA-APOTEX-2023AP004950

PATIENT
  Age: 60 Year
  Sex: Male

DRUGS (71)
  1. ALBUTEROL [Suspect]
     Active Substance: ALBUTEROL
     Indication: Vasculitis
     Dosage: 10 MILLIGRAM
     Route: 065
  2. ALBUTEROL [Suspect]
     Active Substance: ALBUTEROL
     Indication: Eosinophilia
     Dosage: UNK, QID
     Route: 065
  3. ALBUTEROL [Suspect]
     Active Substance: ALBUTEROL
     Indication: Hypersensitivity vasculitis
     Dosage: 10 MICROGRAM
  4. ALBUTEROL [Suspect]
     Active Substance: ALBUTEROL
     Dosage: UNK
     Route: 065
  5. ALBUTEROL [Suspect]
     Active Substance: ALBUTEROL
     Dosage: UNK
  6. AZATHIOPRINE [Suspect]
     Active Substance: AZATHIOPRINE
     Indication: Product used for unknown indication
     Dosage: 100 DOSAGE FORM
     Route: 065
  7. AZATHIOPRINE [Suspect]
     Active Substance: AZATHIOPRINE
     Dosage: UNK
     Route: 065
  8. AZATHIOPRINE [Suspect]
     Active Substance: AZATHIOPRINE
     Dosage: 100 MILLIGRAM
     Route: 065
  9. PREDNISONE [Suspect]
     Active Substance: PREDNISONE
     Indication: Product used for unknown indication
     Dosage: 2.5 MILLIGRAM
     Route: 065
  10. PREDNISONE [Suspect]
     Active Substance: PREDNISONE
     Dosage: 30 MILLIGRAM
     Route: 065
  11. PREDNISONE [Suspect]
     Active Substance: PREDNISONE
     Dosage: 5 MILLIGRAM, QD
  12. PREDNISONE [Suspect]
     Active Substance: PREDNISONE
     Dosage: UNK
     Route: 065
  13. ROSUVASTATIN [Suspect]
     Active Substance: ROSUVASTATIN
     Indication: Hypersensitivity vasculitis
     Dosage: UNK
     Route: 065
  14. ROSUVASTATIN [Suspect]
     Active Substance: ROSUVASTATIN
     Dosage: UNK
  15. MOMETASONE [Suspect]
     Active Substance: MOMETASONE
     Indication: Product used for unknown indication
     Dosage: UNK
     Route: 065
  16. MOMETASONE [Suspect]
     Active Substance: MOMETASONE
  17. ASPIRIN [Suspect]
     Active Substance: ASPIRIN
     Indication: Product used for unknown indication
     Dosage: UNK
     Route: 065
  18. FLUTICASONE [Suspect]
     Active Substance: FLUTICASONE
     Indication: Asthma
     Dosage: UNK
     Route: 065
  19. FLUTICASONE [Suspect]
     Active Substance: FLUTICASONE
     Dosage: 500 NANOGRAM
     Route: 065
  20. FLUTICASONE [Suspect]
     Active Substance: FLUTICASONE
     Dosage: 2 DOSAGE FORM
     Route: 065
  21. ALBUTEROL [Suspect]
     Active Substance: ALBUTEROL
     Indication: Eosinophilia
     Dosage: UNK
     Route: 065
  22. ZENHALE [Suspect]
     Active Substance: FORMOTEROL FUMARATE\MOMETASONE FUROATE
     Indication: Productive cough
     Dosage: 1 EVERY 1 DAYS
     Route: 065
  23. ZENHALE [Suspect]
     Active Substance: FORMOTEROL FUMARATE\MOMETASONE FUROATE
     Dosage: UNK
     Route: 065
  24. ZENHALE [Suspect]
     Active Substance: FORMOTEROL FUMARATE\MOMETASONE FUROATE
     Dosage: UNK, QD
  25. ZENHALE [Suspect]
     Active Substance: FORMOTEROL FUMARATE\MOMETASONE FUROATE
     Dosage: UNK, QID
     Route: 065
  26. ZENHALE [Suspect]
     Active Substance: FORMOTEROL FUMARATE\MOMETASONE FUROATE
     Dosage: 1 EVERY 12 HOURS
     Route: 065
  27. ZENHALE [Suspect]
     Active Substance: FORMOTEROL FUMARATE\MOMETASONE FUROATE
     Dosage: UNK
     Route: 065
  28. ZENHALE [Suspect]
     Active Substance: FORMOTEROL FUMARATE\MOMETASONE FUROATE
     Dosage: UNK, QID
  29. ZENHALE [Suspect]
     Active Substance: FORMOTEROL FUMARATE\MOMETASONE FUROATE
     Dosage: 1 EVERY 12 HOURS
     Route: 065
  30. ZENHALE [Suspect]
     Active Substance: FORMOTEROL FUMARATE\MOMETASONE FUROATE
     Dosage: 1 EVERY 24 HOURS
     Route: 065
  31. ZENHALE [Suspect]
     Active Substance: FORMOTEROL FUMARATE\MOMETASONE FUROATE
     Dosage: 1 EVERY 1 DAYS
     Route: 065
  32. ZENHALE [Suspect]
     Active Substance: FORMOTEROL FUMARATE\MOMETASONE FUROATE
     Dosage: 4 EVERY 1 DAYS
  33. ZENHALE [Suspect]
     Active Substance: FORMOTEROL FUMARATE\MOMETASONE FUROATE
     Dosage: 1 EVERY 1 DAYS
     Route: 065
  34. ZENHALE [Suspect]
     Active Substance: FORMOTEROL FUMARATE\MOMETASONE FUROATE
     Dosage: 2 EVERY 1 DAYS
     Route: 065
  35. ZENHALE [Suspect]
     Active Substance: FORMOTEROL FUMARATE\MOMETASONE FUROATE
     Dosage: 1 EVERY 1 DAYS
     Route: 065
  36. NUCALA [Suspect]
     Active Substance: MEPOLIZUMAB
     Indication: Asthma
     Dosage: UNK
     Route: 065
  37. NUCALA [Suspect]
     Active Substance: MEPOLIZUMAB
     Dosage: 100 MILLIGRAM, BID
  38. NUCALA [Suspect]
     Active Substance: MEPOLIZUMAB
     Dosage: 2 EVERY 1 DAYS
  39. NUCALA [Suspect]
     Active Substance: MEPOLIZUMAB
     Dosage: 1 EVERY 1 MONTHS
  40. NUCALA [Suspect]
     Active Substance: MEPOLIZUMAB
     Dosage: UNK
  41. NUCALA [Suspect]
     Active Substance: MEPOLIZUMAB
     Dosage: 100 MILLIGRAM
  42. NUCALA [Suspect]
     Active Substance: MEPOLIZUMAB
     Dosage: 1 EVERY 12 HOURS
  43. NUCALA [Suspect]
     Active Substance: MEPOLIZUMAB
     Route: 065
  44. FORMOTEROL FUMARATE [Suspect]
     Active Substance: FORMOTEROL FUMARATE
     Indication: Product used for unknown indication
     Dosage: 100 DOSAGE FORM
     Route: 065
  45. FORMOTEROL FUMARATE [Suspect]
     Active Substance: FORMOTEROL FUMARATE
     Dosage: 100 MILLIGRAM
     Route: 065
  46. GLYCOPYRRONIUM [Suspect]
     Active Substance: GLYCOPYRRONIUM
     Indication: Product used for unknown indication
     Dosage: 1 DOSAGE FORM, QD
     Route: 065
  47. GLYCOPYRRONIUM [Suspect]
     Active Substance: GLYCOPYRRONIUM
     Dosage: 1 DOSAGE FORM, QD
  48. BUDESONIDE [Suspect]
     Active Substance: BUDESONIDE
     Indication: Product used for unknown indication
     Dosage: 2 DOSAGE FORM, BID
     Route: 065
  49. BUDESONIDE [Suspect]
     Active Substance: BUDESONIDE
     Dosage: 1 EVERY 12 HOURS
     Route: 065
  50. BUDESONIDE [Suspect]
     Active Substance: BUDESONIDE
     Dosage: 1 EVERY 1 DAYS
     Route: 065
  51. BUDESONIDE [Suspect]
     Active Substance: BUDESONIDE
     Dosage: 2 EVERY 1 DAYS
     Route: 065
  52. BUDESONIDE [Suspect]
     Active Substance: BUDESONIDE
     Dosage: 1 EVERY 12 HOURS
     Route: 065
  53. SPIRIVA [Suspect]
     Active Substance: TIOTROPIUM BROMIDE MONOHYDRATE
     Indication: Product used for unknown indication
     Dosage: 2 DOSAGE FORM, QD
     Route: 065
  54. SPIRIVA [Suspect]
     Active Substance: TIOTROPIUM BROMIDE MONOHYDRATE
     Dosage: 1 DOSAGE FORM, QD
     Route: 065
  55. FORMOTEROL FUMARATE [Suspect]
     Active Substance: FORMOTEROL FUMARATE
     Indication: Productive cough
     Dosage: 2 DOSAGE FORM, QD
     Route: 065
  56. FORMOTEROL FUMARATE [Suspect]
     Active Substance: FORMOTEROL FUMARATE
     Dosage: UNK, QD
     Route: 065
  57. FORMOTEROL FUMARATE [Suspect]
     Active Substance: FORMOTEROL FUMARATE
     Dosage: 500 MILLIGRAM
     Route: 065
  58. FORMOTEROL FUMARATE [Suspect]
     Active Substance: FORMOTEROL FUMARATE
     Dosage: 2 EVERY 1 DAYS
     Route: 065
  59. FORMOTEROL FUMARATE [Suspect]
     Active Substance: FORMOTEROL FUMARATE
     Dosage: 1 EVERY 12 HOURS
     Route: 065
  60. FORMOTEROL FUMARATE [Suspect]
     Active Substance: FORMOTEROL FUMARATE
     Dosage: 500 MICROGRAM
     Route: 065
  61. FLUTICASONE PROPIONATE\SALMETEROL XINAFOATE [Suspect]
     Active Substance: FLUTICASONE PROPIONATE\SALMETEROL XINAFOATE
     Indication: Asthma
     Dosage: UNK
     Route: 065
  62. FLUTICASONE PROPIONATE\SALMETEROL XINAFOATE [Suspect]
     Active Substance: FLUTICASONE PROPIONATE\SALMETEROL XINAFOATE
     Dosage: 1 EVERY 1 DAYS
     Route: 065
  63. LUCENTIS [Suspect]
     Active Substance: RANIBIZUMAB
     Indication: Product used for unknown indication
     Dosage: 1 DOSAGE FORM
     Route: 065
  64. SYMBICORT [Suspect]
     Active Substance: BUDESONIDE\FORMOTEROL FUMARATE DIHYDRATE
     Indication: Product used for unknown indication
     Dosage: 1 EVERY 12 HOURS
     Route: 065
  65. SYMBICORT [Suspect]
     Active Substance: BUDESONIDE\FORMOTEROL FUMARATE DIHYDRATE
     Dosage: 2 EVERY 1 DAYS
     Route: 065
  66. SYMBICORT [Suspect]
     Active Substance: BUDESONIDE\FORMOTEROL FUMARATE DIHYDRATE
     Dosage: 1 EVERY 1 DAYS
     Route: 065
  67. VENTOLIN HFA [Suspect]
     Active Substance: ALBUTEROL SULFATE
     Indication: Vasculitis
     Dosage: UNK
     Route: 065
  68. VENTOLIN HFA [Suspect]
     Active Substance: ALBUTEROL SULFATE
     Indication: Hypersensitivity vasculitis
     Dosage: 10 MILLIGRAM
     Route: 065
  69. VENTOLIN HFA [Suspect]
     Active Substance: ALBUTEROL SULFATE
     Indication: Eosinophilia
     Dosage: 10 MICROGRAM
     Route: 065
  70. VENTOLIN HFA [Suspect]
     Active Substance: ALBUTEROL SULFATE
     Indication: Vasculitis
     Dosage: UNK
     Route: 065
  71. VENTOLIN HFA [Suspect]
     Active Substance: ALBUTEROL SULFATE
     Indication: Eosinophilia

REACTIONS (19)
  - Disease recurrence [Recovered/Resolved]
  - Productive cough [Recovered/Resolved]
  - Drug dependence [Recovered/Resolved]
  - Eosinophil count increased [Recovered/Resolved]
  - Eosinophilic granulomatosis with polyangiitis [Recovered/Resolved]
  - Full blood count abnormal [Recovered/Resolved]
  - Gastrooesophageal reflux disease [Recovered/Resolved]
  - Hypoaesthesia [Recovered/Resolved]
  - Haemoptysis [Recovered/Resolved]
  - Asthma [Recovered/Resolved]
  - Dyspnoea [Recovered/Resolved]
  - Cough [Recovered/Resolved]
  - Vasculitis [Recovered/Resolved]
  - Neuropathy peripheral [Recovered/Resolved]
  - Paraesthesia [Recovered/Resolved]
  - Malaise [Recovered/Resolved]
  - Visual impairment [Recovered/Resolved]
  - Upper respiratory tract infection [Recovered/Resolved]
  - Therapeutic product effect incomplete [Recovered/Resolved]
